FAERS Safety Report 4825455-X (Version None)
Quarter: 2005Q4

REPORT INFORMATION
  Report Type: 
  Country: None (occurrence: None)
  Receive Date: 20051111
  Receipt Date: 20050706
  Transmission Date: 20060501
  Serious: Yes (Hospitalization, Other)
  Sender: FDA-Public Use
  Company Number: US-MERCK-0511USA00570

PATIENT
  Age: 66 Year
  Sex: Female

DRUGS (2)
  1. FOSAMAX [Suspect]
     Indication: OSTEOPOROSIS
     Route: 048
  2. FOSAMAX [Suspect]
     Indication: OSTEOGENESIS IMPERFECTA
     Route: 048

REACTIONS (9)
  - BLINDNESS UNILATERAL [None]
  - EYE DISORDER [None]
  - FALL [None]
  - HEAD INJURY [None]
  - MOUTH INJURY [None]
  - POST CONCUSSION SYNDROME [None]
  - RIB FRACTURE [None]
  - UPPER LIMB FRACTURE [None]
  - WRIST FRACTURE [None]
